FAERS Safety Report 17418006 (Version 2)
Quarter: 2020Q3

REPORT INFORMATION
  Report Type: Spontaneous
  Country: IT (occurrence: IT)
  Receive Date: 20200214
  Receipt Date: 20200909
  Transmission Date: 20201102
  Serious: Yes (Hospitalization, Other)
  Sender: FDA-Public Use
  Company Number: IT-AKCEA THERAPEUTICS-2020IS001072

PATIENT
  Age: 57 Year
  Sex: Male

DRUGS (10)
  1. GABAPENTIN. [Concomitant]
     Active Substance: GABAPENTIN
     Route: 065
  2. TEGSEDI [Suspect]
     Active Substance: INOTERSEN SODIUM
     Route: 058
     Dates: start: 202005
  3. NAUSIL [Concomitant]
     Route: 065
  4. TEGSEDI [Suspect]
     Active Substance: INOTERSEN SODIUM
     Indication: HEREDITARY NEUROPATHIC AMYLOIDOSIS
     Route: 058
     Dates: start: 20190408
  5. ISSD (INTEGRATED SYRINGE SAFETY DEVICE) [Suspect]
     Active Substance: DEVICE
  6. TAREG [Concomitant]
     Active Substance: VALSARTAN
     Route: 065
  7. TAFAMIDIS [Concomitant]
     Active Substance: TAFAMIDIS MEGLUMINE
     Route: 065
     Dates: start: 2018
  8. CREON [Concomitant]
     Active Substance: PANCRELIPASE AMYLASE\PANCRELIPASE LIPASE\PANCRELIPASE PROTEASE
     Route: 065
  9. CYMBALTA [Concomitant]
     Active Substance: DULOXETINE HYDROCHLORIDE
     Route: 065
  10. VITAMIN A /00056001/ [Concomitant]
     Active Substance: RETINOL
     Route: 065

REACTIONS (11)
  - Tricuspid valve incompetence [Unknown]
  - Right ventricular hypertrophy [Unknown]
  - Left ventricular end-diastolic pressure increased [Unknown]
  - Implantable defibrillator insertion [Recovered/Resolved]
  - Ventricular dysfunction [Unknown]
  - Chest pain [Unknown]
  - Off label use [Not Recovered/Not Resolved]
  - Device malfunction [Recovered/Resolved]
  - Heart injury [Unknown]
  - Mitral valve thickening [Unknown]
  - Mitral valve sclerosis [Unknown]

NARRATIVE: CASE EVENT DATE: 20190408
